FAERS Safety Report 10540816 (Version 1)
Quarter: 2014Q4

REPORT INFORMATION
  Report Type: Spontaneous
  Country: US (occurrence: None)
  Receive Date: 20141023
  Receipt Date: 20141023
  Transmission Date: 20150529
  Serious: Yes (Life-Threatening, Hospitalization)
  Sender: FDA-Public Use
  Company Number: None

PATIENT
  Age: 38 Year
  Sex: Female
  Weight: 68.04 kg

DRUGS (1)
  1. NUVARING [Suspect]
     Active Substance: ETHINYL ESTRADIOL\ETONOGESTREL
     Indication: CONTRACEPTION
     Dosage: 1 RING, ONE TIME PER MONTH
     Route: 067

REACTIONS (6)
  - Pain [None]
  - Cough [None]
  - Pulmonary infarction [None]
  - Palpitations [None]
  - Pneumonia [None]
  - Pulmonary embolism [None]

NARRATIVE: CASE EVENT DATE: 20140926
